FAERS Safety Report 25966785 (Version 1)
Quarter: 2025Q4

REPORT INFORMATION
  Report Type: Spontaneous
  Country: JP (occurrence: JP)
  Receive Date: 20251028
  Receipt Date: 20251028
  Transmission Date: 20260117
  Serious: Yes (Other)
  Sender: MERCK SHARP & DOHME LLC
  Company Number: JP-009507513-2342981

PATIENT
  Age: 69 Year
  Sex: Female

DRUGS (3)
  1. KEYTRUDA [Suspect]
     Active Substance: PEMBROLIZUMAB
     Indication: Gallbladder cancer recurrent
     Route: 065
  2. GEMCITABINE [Suspect]
     Active Substance: GEMCITABINE
     Indication: Gallbladder cancer recurrent
     Route: 065
  3. CISPLATIN [Suspect]
     Active Substance: CISPLATIN
     Indication: Gallbladder cancer recurrent
     Route: 065

REACTIONS (8)
  - Biliary tract infection [Unknown]
  - Constipation [Unknown]
  - Malignant neoplasm progression [Unknown]
  - Anaemia [Unknown]
  - Rash [Unknown]
  - Nausea [Unknown]
  - Therapy partial responder [Unknown]
  - Decreased appetite [Unknown]
